FAERS Safety Report 10189101 (Version 2)
Quarter: 2014Q2

REPORT INFORMATION
  Report Type: Spontaneous
  Country: US (occurrence: US)
  Receive Date: 20140522
  Receipt Date: 20140613
  Transmission Date: 20141212
  Serious: Yes (Hospitalization)
  Sender: FDA-Public Use
  Company Number: US-JNJFOC-20140513464

PATIENT
  Sex: Male

DRUGS (3)
  1. IMBRUVICA [Suspect]
     Indication: CHRONIC LYMPHOCYTIC LEUKAEMIA
     Route: 048
     Dates: start: 201403, end: 2014
  2. IMBRUVICA [Suspect]
     Indication: CHRONIC LYMPHOCYTIC LEUKAEMIA
     Route: 048
     Dates: start: 2014
  3. WARFARIN [Concomitant]
     Indication: ATRIAL FIBRILLATION

REACTIONS (2)
  - Subdural haematoma [Recovered/Resolved]
  - Lymphocytosis [Recovering/Resolving]
